FAERS Safety Report 9515490 (Version 1)
Quarter: 2013Q3

REPORT INFORMATION
  Report Type: Spontaneous
  Country: FR (occurrence: FR)
  Receive Date: 20130911
  Receipt Date: 20130911
  Transmission Date: 20140515
  Serious: Yes (Death)
  Sender: FDA-Public Use
  Company Number: PHHY2013FR099622

PATIENT
  Age: 77 Year
  Sex: Male

DRUGS (13)
  1. ACLASTA [Suspect]
     Dosage: 5 MG
     Route: 042
     Dates: start: 20120706
  2. PROCORALAN [Concomitant]
     Dosage: 5 MG, BID
  3. TRIATEC [Concomitant]
     Dosage: 1.25 MG, QD
  4. FUROSEMIDE [Concomitant]
     Dosage: 40 MG, BID
  5. TEMERIT [Concomitant]
     Dosage: 5 MG,0.25 DF DAILY
  6. KARDEGIC [Concomitant]
     Dosage: 75 MG, QD
  7. NATISPRAY [Concomitant]
     Dosage: UNK UKN, UNK
  8. XATRAL [Concomitant]
     Dosage: 10 MG, QD
  9. FORSTEO [Concomitant]
     Dosage: UNK UKN, UNK
  10. XALATAN [Concomitant]
     Dosage: UNK UKN, UNK
  11. COSOPT [Concomitant]
     Dosage: UNK UKN, UNK
  12. NICORETTE ^HOECHST MARION ROUSSEL^ [Concomitant]
     Dosage: UNK UKN, UNK
  13. SYMBICORD [Concomitant]
     Dosage: UNK UKN, UNK

REACTIONS (2)
  - Atrial fibrillation [Fatal]
  - Cardiac failure [Fatal]
